FAERS Safety Report 10411872 (Version 1)
Quarter: 2014Q2

REPORT INFORMATION
  Report Type: Spontaneous
  Country: US (occurrence: None)
  Receive Date: 20140604
  Receipt Date: 20140604
  Transmission Date: 20141212
  Serious: Yes (Disabling)
  Sender: FDA-Public Use
  Company Number: 163-POMAL-14030954

PATIENT
  Age: 56 Year
  Sex: Male

DRUGS (5)
  1. POMALYST (POMALIDOMIDE) (CAPSULES) [Suspect]
     Indication: PLASMA CELL MYELOMA
     Dosage: 4 MG, 21 IN 21 D
     Route: 048
     Dates: start: 20130726
  2. AMLODIPINE BESYLATE (AMLODIPINE BESILATE) [Concomitant]
  3. ASPIRIN (ACETYLSALICYLIC ACID) [Concomitant]
  4. DEXAMETHASONE [Concomitant]
  5. NEUROQOL (QUETIAPINE FUMARATE) [Concomitant]

REACTIONS (2)
  - Plasma cell myeloma [None]
  - Drug ineffective [None]
